FAERS Safety Report 23310038 (Version 2)
Quarter: 2024Q2

REPORT INFORMATION
  Report Type: Spontaneous
  Country: US (occurrence: US)
  Receive Date: 20231218
  Receipt Date: 20240517
  Transmission Date: 20240716
  Serious: Yes (Hospitalization)
  Sender: FDA-Public Use
  Company Number: US-RIGEL Pharmaceuticals, INC-2023FOS001325

PATIENT
  Age: 39 Year
  Sex: Female

DRUGS (5)
  1. TAVALISSE [Suspect]
     Active Substance: FOSTAMATINIB
     Indication: Pulmonary embolism
     Dosage: 150 MG, UNK
     Route: 065
  2. TAVALISSE [Suspect]
     Active Substance: FOSTAMATINIB
     Indication: Infarction
     Dosage: 100 MG, BID
     Route: 048
     Dates: start: 20230803
  3. TAVALISSE [Suspect]
     Active Substance: FOSTAMATINIB
     Dosage: 100 MG, Q12H, ON TUESDAY, THURSDAY, SATURDAY, AND SUNDAY
     Route: 048
  4. TAVALISSE [Suspect]
     Active Substance: FOSTAMATINIB
     Dosage: 100 MG, QD, ON MONDAY, WEDNESDAY, AND FRIDAY
     Route: 048
  5. AMLODIPINE [Concomitant]
     Active Substance: AMLODIPINE BESYLATE
     Indication: Hypertension
     Dosage: 5 MG, QD

REACTIONS (5)
  - Dehydration [Recovered/Resolved]
  - Diarrhoea [Recovering/Resolving]
  - COVID-19 [Unknown]
  - Off label use [Unknown]
  - Product prescribing issue [Unknown]

NARRATIVE: CASE EVENT DATE: 20231201
